FAERS Safety Report 5725811-1 (Version None)
Quarter: 2008Q2

REPORT INFORMATION
  Report Type: 
  Country: None (occurrence: None)
  Receive Date: 20080429
  Receipt Date: 20080416
  Transmission Date: 20081010
  Serious: Yes (Other)
  Sender: FDA-Public Use
  Company Number: 2008SP007203

PATIENT
  Age: 15 Year
  Sex: Male

DRUGS (2)
  1. CORICIDIN HBP COUGH + COLD (CHLORPHENIRAMINE MALEATE/DEXTROMETHORPHAN [Suspect]
     Indication: INTENTIONAL OVERDOSE
     Dosage: 9 DF; PO
     Route: 048
     Dates: start: 20080414
  2. ABILIFY [Concomitant]

REACTIONS (4)
  - HYPERTENSION [None]
  - INTENTIONAL OVERDOSE [None]
  - MYDRIASIS [None]
  - PALPITATIONS [None]
